FAERS Safety Report 16285759 (Version 1)
Quarter: 2019Q2

REPORT INFORMATION
  Report Type: Spontaneous
  Country: US (occurrence: US)
  Receive Date: 20190506
  Receipt Date: 20190506
  Transmission Date: 20190711
  Serious: Yes (Other)
  Sender: FDA-Public Use
  Company Number: None

PATIENT
  Age: 48 Year
  Sex: Female
  Weight: 108 kg

DRUGS (4)
  1. ESTRADIOL 0.1 [Suspect]
     Active Substance: ESTRADIOL
     Indication: OESTROGEN REPLACEMENT THERAPY
  2. MULTI VITAMIN [Concomitant]
     Active Substance: VITAMINS
  3. ESTRADIOL 0.05 [Suspect]
     Active Substance: ESTRADIOL
     Indication: OESTROGEN REPLACEMENT THERAPY
     Dosage: OTHER FREQUENCY:EVERY 3 DAYS;OTHER ROUTE:PATCH PLACED IN BELLY?
     Dates: start: 20181106, end: 20190301
  4. DULOXETINE. [Concomitant]
     Active Substance: DULOXETINE

REACTIONS (3)
  - Application site burn [None]
  - Application site pruritus [None]
  - Application site rash [None]

NARRATIVE: CASE EVENT DATE: 20190210
